FAERS Safety Report 7646320-9 (Version None)
Quarter: 2011Q3

REPORT INFORMATION
  Report Type: 
  Country: None (occurrence: None)
  Receive Date: 20110725
  Receipt Date: 20110708
  Transmission Date: 20111222
  Serious: Yes (Other)
  Sender: FDA-Public Use
  Company Number: AUR-APL-2011-04014

PATIENT
  Age: 79 Year
  Sex: Female
  Weight: 74.8435 kg

DRUGS (3)
  1. PRAVASTATIN [Concomitant]
  2. LEVOTHYROXINE SODIUM [Concomitant]
  3. ALENDRONATE SODIUM [Suspect]
     Indication: OSTEOPOROSIS
     Dosage: (70 MG,1 WK),ORAL
     Route: 048
     Dates: start: 20110201, end: 20110701

REACTIONS (3)
  - BONE PAIN [None]
  - ARTHRALGIA [None]
  - MYALGIA [None]
